FAERS Safety Report 20236682 (Version 1)
Quarter: 2021Q4

REPORT INFORMATION
  Report Type: Spontaneous
  Country: US (occurrence: US)
  Receive Date: 20211228
  Receipt Date: 20211228
  Transmission Date: 20220304
  Serious: Yes (Other)
  Sender: FDA-Public Use
  Company Number: US-GRANULES-US-2021GRALIT00573

PATIENT
  Age: 45 Year
  Sex: Male

DRUGS (1)
  1. IBUPROFEN [Suspect]
     Active Substance: IBUPROFEN
     Indication: Pain
     Dosage: 8 TABLETS
     Route: 065

REACTIONS (2)
  - Liver injury [Recovering/Resolving]
  - Carbohydrate antigen 19-9 [Recovering/Resolving]
